FAERS Safety Report 12236802 (Version 1)
Quarter: 2016Q2

REPORT INFORMATION
  Report Type: Spontaneous
  Country: US (occurrence: US)
  Receive Date: 20160405
  Receipt Date: 20160405
  Transmission Date: 20160815
  Serious: No
  Sender: FDA-Public Use
  Company Number: US-AUROBINDO-AUR-APU-2015-10854

PATIENT
  Age: 47 Year
  Sex: Female

DRUGS (3)
  1. SULFAMETHOXAZOLE AND TRIMETHOPRIM TABLETS USP 400/80 MG [Suspect]
     Active Substance: SULFAMETHOXAZOLE\TRIMETHOPRIM
     Indication: LICE INFESTATION
     Dosage: TWO TABLETS, DAILY
     Route: 065
     Dates: start: 20150808, end: 20150812
  2. MELOXICAM. [Concomitant]
     Active Substance: MELOXICAM
     Indication: PRODUCT USED FOR UNKNOWN INDICATION
     Dosage: EVENING
     Route: 065
  3. LEVOTHYROXINE. [Concomitant]
     Active Substance: LEVOTHYROXINE
     Indication: PRODUCT USED FOR UNKNOWN INDICATION
     Dosage: UNK, EVERY MORNING
     Route: 065

REACTIONS (14)
  - Lymphadenopathy [Recovered/Resolved]
  - Hyperhidrosis [Unknown]
  - Off label use [Recovered/Resolved]
  - Nausea [Recovered/Resolved]
  - Pain [Recovered/Resolved]
  - Lice infestation [Recovered/Resolved]
  - Rash generalised [Recovered/Resolved]
  - Hot flush [Unknown]
  - Tinnitus [Recovered/Resolved]
  - Dehydration [Recovered/Resolved]
  - Menopause [Not Recovered/Not Resolved]
  - Hypotension [Recovered/Resolved]
  - Syncope [Recovered/Resolved]
  - Pyrexia [Recovered/Resolved]

NARRATIVE: CASE EVENT DATE: 20150812
